APPROVED DRUG PRODUCT: QUINIDINE GLUCONATE
Active Ingredient: QUINIDINE GLUCONATE
Strength: 324MG
Dosage Form/Route: TABLET, EXTENDED RELEASE;ORAL
Application: A087810 | Product #001
Applicant: ANI PHARMACEUTICALS INC
Approved: Sep 29, 1982 | RLD: No | RS: No | Type: DISCN